FAERS Safety Report 14987932 (Version 1)
Quarter: 2018Q2

REPORT INFORMATION
  Report Type: Spontaneous
  Country: US (occurrence: US)
  Receive Date: 20180519
  Receipt Date: 20180519
  Transmission Date: 20180711
  Serious: Yes (Disabling, Other)
  Sender: FDA-Public Use
  Company Number: None

PATIENT
  Age: 47 Year
  Sex: Female

DRUGS (6)
  1. SEA BUCKTHORN OIL [Concomitant]
  2. MONISTAT 3 [Suspect]
     Active Substance: MICONAZOLE NITRATE
  3. MONISTAT 1 COMBINATION PACK [Suspect]
     Active Substance: MICONAZOLE NITRATE
     Indication: FUNGAL INFECTION
     Route: 067
     Dates: start: 20151009, end: 20151218
  4. CONTRAVE [Concomitant]
     Active Substance: BUPROPION HYDROCHLORIDE\NALTREXONE HYDROCHLORIDE
  5. VITAMIN D [Concomitant]
     Active Substance: CHOLECALCIFEROL
  6. MONISTAT 7 [Suspect]
     Active Substance: MICONAZOLE NITRATE

REACTIONS (5)
  - Nerve injury [None]
  - Chemical burn [None]
  - Condition aggravated [None]
  - Quality of life decreased [None]
  - Vulvovaginal burning sensation [None]

NARRATIVE: CASE EVENT DATE: 20151009
